FAERS Safety Report 18651398 (Version 2)
Quarter: 2021Q1

REPORT INFORMATION
  Report Type: Spontaneous
  Country: FR (occurrence: FR)
  Receive Date: 20201222
  Receipt Date: 20210129
  Transmission Date: 20210419
  Serious: Yes (Hospitalization)
  Sender: FDA-Public Use
  Company Number: FR-MYLANLABS-2020M1103715

PATIENT
  Age: 32 Year
  Sex: Female

DRUGS (3)
  1. GYMISO [Suspect]
     Active Substance: MISOPROSTOL
     Dosage: 400 MILLIGRAM, TOTAL
     Route: 048
     Dates: start: 20190525, end: 20190525
  2. HYDROCORTISONE. [Suspect]
     Active Substance: HYDROCORTISONE
     Indication: ADRENAL INSUFFICIENCY
     Dosage: 100 MILLIGRAM, TOTAL
     Dates: start: 202006, end: 202006
  3. GYMISO [Suspect]
     Active Substance: MISOPROSTOL
     Indication: ABORTION SPONTANEOUS
     Dosage: 400 MILLIGRAM, TOTAL
     Route: 048
     Dates: start: 20190602, end: 20190602

REACTIONS (2)
  - Haemorrhage [Recovered/Resolved]
  - Drug ineffective [Recovered/Resolved]

NARRATIVE: CASE EVENT DATE: 20190525
